FAERS Safety Report 4918036-0 (Version None)
Quarter: 2006Q1

REPORT INFORMATION
  Report Type: 
  Country: None (occurrence: None)
  Receive Date: 20060215
  Receipt Date: 20060130
  Transmission Date: 20060701
  Serious: Yes (Death)
  Sender: FDA-Public Use
  Company Number: 221921

PATIENT
  Sex: Female

DRUGS (4)
  1. HERCEPTIN [Suspect]
     Dates: start: 20051212
  2. TAXOTERE [Suspect]
     Dates: start: 20051212
  3. NAVELBINE [Suspect]
     Dates: start: 20051212
  4. SOMATROPIN (SOMATROPIN) [Concomitant]

REACTIONS (2)
  - FEBRILE NEUTROPENIA [None]
  - OROPHARYNGEAL CANDIDIASIS [None]
